FAERS Safety Report 9452893 (Version 3)
Quarter: 2013Q3

REPORT INFORMATION
  Report Type: Spontaneous
  Country: PL (occurrence: PL)
  Receive Date: 20130812
  Receipt Date: 20130925
  Transmission Date: 20140515
  Serious: Yes (Life-Threatening, Hospitalization, Other)
  Sender: FDA-Public Use
  Company Number: PL-PFIZER INC-2013228403

PATIENT
  Age: 41 Year
  Sex: Male
  Weight: 105 kg

DRUGS (3)
  1. SOMAVERT [Suspect]
     Indication: ACROMEGALY
     Dosage: 1 INJECTION EVERY 2 DAYS
     Route: 058
     Dates: start: 2005
  2. SOMAVERT [Suspect]
     Dosage: 15 MG, ALTERNATE DAY
     Route: 058
  3. HYDROCORTISON [Suspect]
     Dosage: UP TO 3 TABLETS PER DAY

REACTIONS (4)
  - Pulmonary embolism [Recovering/Resolving]
  - Thrombosis [Unknown]
  - Arthropathy [Unknown]
  - Drug ineffective [Unknown]
